FAERS Safety Report 8428800-1 (Version None)
Quarter: 2012Q2

REPORT INFORMATION
  Report Type: 
  Country: None (occurrence: None)
  Receive Date: 20120612
  Receipt Date: 20120604
  Transmission Date: 20120825
  Serious: Yes (Hospitalization)
  Sender: FDA-Public Use
  Company Number: JP-ASTRAZENECA-2012SE37863

PATIENT
  Sex: Male

DRUGS (7)
  1. TARGOCID [Suspect]
     Indication: INFECTION
     Route: 030
     Dates: start: 20120413, end: 20120420
  2. LERCANIDIPINE [Concomitant]
     Indication: HYPERTENSION
     Route: 048
  3. OFLOXACIN [Suspect]
     Indication: INFECTION
     Route: 048
     Dates: start: 20120419, end: 20120424
  4. POTASSIUM CHLORIDE [Concomitant]
     Indication: MINERAL SUPPLEMENTATION
     Route: 048
  5. CANDESARTAN CILEXETIL AND HYDROCHLOROTHIAZIDE [Suspect]
     Indication: HYPERTENSION
     Dosage: 16/12.5 MG EVERY DAY
     Route: 048
     Dates: end: 20120424
  6. LOVENOX [Suspect]
     Indication: THROMBOSIS PROPHYLAXIS
     Route: 058
     Dates: start: 20120413
  7. TETRAZEPAM [Concomitant]
     Indication: PRODUCT USED FOR UNKNOWN INDICATION
     Route: 065

REACTIONS (1)
  - PETECHIAE [None]
